FAERS Safety Report 21977515 (Version 1)
Quarter: 2023Q1

REPORT INFORMATION
  Report Type: Report from Study
  Country: US (occurrence: US)
  Receive Date: 20230210
  Receipt Date: 20230210
  Transmission Date: 20230417
  Serious: Yes (Death)
  Sender: FDA-Public Use
  Company Number: US-002147023-NVSC2023US030019

PATIENT
  Age: 83 Year
  Sex: Female

DRUGS (1)
  1. GLEEVEC [Suspect]
     Active Substance: IMATINIB MESYLATE
     Indication: Product used for unknown indication
     Dosage: 300 MG, QD
     Route: 048
     Dates: start: 20160130

REACTIONS (1)
  - Death [Fatal]

NARRATIVE: CASE EVENT DATE: 20230204
